FAERS Safety Report 10849978 (Version 2)
Quarter: 2015Q1

REPORT INFORMATION
  Report Type: Spontaneous
  Country: US (occurrence: US)
  Receive Date: 20150221
  Receipt Date: 20150226
  Transmission Date: 20150721
  Serious: Yes (Other)
  Sender: FDA-Public Use
  Company Number: US-CELGENEUS-163-21880-14045168

PATIENT
  Sex: Male
  Weight: 78.09 kg

DRUGS (2)
  1. ASA [Concomitant]
     Active Substance: ASPIRIN
     Indication: PRODUCT USED FOR UNKNOWN INDICATION
     Route: 065
  2. REVLIMID [Suspect]
     Active Substance: LENALIDOMIDE
     Indication: PLASMA CELL MYELOMA
     Dosage: 20 MILLIGRAM
     Route: 048
     Dates: start: 201402, end: 2014

REACTIONS (4)
  - Pulmonary embolism [Unknown]
  - Pyrexia [Unknown]
  - Deep vein thrombosis [Unknown]
  - Chills [Unknown]

NARRATIVE: CASE EVENT DATE: 2014
